FAERS Safety Report 14346356 (Version 1)
Quarter: 2018Q1

REPORT INFORMATION
  Report Type: Spontaneous
  Country: US (occurrence: US)
  Receive Date: 20180103
  Receipt Date: 20180103
  Transmission Date: 20180509
  Serious: Yes (Other)
  Sender: FDA-Public Use
  Company Number: US-PFIZER INC-2018000623

PATIENT
  Age: 79 Year
  Sex: Female
  Weight: 49.9 kg

DRUGS (1)
  1. IBRANCE [Suspect]
     Active Substance: PALBOCICLIB
     Indication: BREAST CANCER METASTATIC
     Dosage: UNK
     Dates: start: 201708, end: 20171111

REACTIONS (2)
  - Pain [Unknown]
  - Hip fracture [Unknown]

NARRATIVE: CASE EVENT DATE: 201711
